FAERS Safety Report 4336726-8 (Version None)
Quarter: 2004Q1

REPORT INFORMATION
  Report Type: 
  Country: None (occurrence: None)
  Receive Date: 20040329
  Receipt Date: 20040130
  Transmission Date: 20041129
  Serious: No
  Sender: FDA-Public Use
  Company Number: USA040258095

PATIENT
  Age: 10 Year
  Sex: Male
  Weight: 57 kg

DRUGS (3)
  1. STRATTERA [Suspect]
     Indication: ATTENTION DEFICIT/HYPERACTIVITY DISORDER
     Dosage: 160 MG/DAY
     Dates: start: 20030101
  2. ZYPREXA [Suspect]
     Indication: ABNORMAL BEHAVIOUR
     Dosage: 5 MG/DAY
     Dates: start: 20020801, end: 20021001
  3. ZOLOFT [Concomitant]

REACTIONS (1)
  - PRESCRIBED OVERDOSE [None]
